FAERS Safety Report 13522401 (Version 2)
Quarter: 2017Q3

REPORT INFORMATION
  Report Type: Spontaneous
  Country: US (occurrence: US)
  Receive Date: 20170508
  Receipt Date: 20170807
  Transmission Date: 20171127
  Serious: No
  Sender: FDA-Public Use
  Company Number: US-OTSUKA-2017_008059

PATIENT
  Sex: Female

DRUGS (1)
  1. ONZETRA [Suspect]
     Active Substance: SUMATRIPTAN SUCCINATE
     Indication: MIGRAINE
     Dosage: 11 MG, 1 SPRAY EACH NOSTRIL (MAY REPEATED IN 2 HOURS)
     Route: 045
     Dates: start: 20170322

REACTIONS (1)
  - Epistaxis [Recovered/Resolved]
